FAERS Safety Report 6469217-9 (Version None)
Quarter: 2009Q4

REPORT INFORMATION
  Report Type: 
  Country: None (occurrence: None)
  Receive Date: 20091203
  Receipt Date: 20080519
  Transmission Date: 20100525
  Serious: Yes (Death, Other)
  Sender: FDA-Public Use
  Company Number: US-ELI_LILLY_AND_COMPANY-US200709003293

PATIENT
  Sex: Male

DRUGS (22)
  1. CYMBALTA [Suspect]
     Indication: PAIN
     Dosage: 30 MG, DAILY (1/D)
     Dates: start: 20070507, end: 20070513
  2. CYMBALTA [Suspect]
     Dosage: 30 MG, 2/D
     Dates: start: 20070514
  3. MEGACE [Concomitant]
     Indication: HOT FLUSH
     Dosage: 20 MG, 2/D
  4. FENTANYL [Concomitant]
     Indication: PAIN
  5. ALPRAZOLAM [Concomitant]
  6. TEMAZEPAM [Concomitant]
     Dosage: 60 MG, UNK
  7. RISPERDAL [Concomitant]
  8. SOMA [Concomitant]
     Dosage: 350 MG, 3/D
  9. DITROPAN [Concomitant]
     Dosage: 1 D/F, UNK
  10. DITROPAN [Concomitant]
     Dosage: 10 MG, UNK
  11. EFFEXOR [Concomitant]
     Dosage: 150 MG, UNK
  12. FLOMAX [Concomitant]
     Dosage: 1 D/F, DAILY (1/D)
  13. LUNESTA [Concomitant]
  14. CELEBREX [Concomitant]
     Dosage: 200 MG, DAILY (1/D)
  15. VICODIN [Concomitant]
     Dosage: UNK, 3/D
  16. ZYRTEC [Concomitant]
     Dosage: 20 MG, UNK
  17. BICALUTAMIDE [Concomitant]
     Dosage: 50 MG, DAILY (1/D)
  18. MIRALAX [Concomitant]
  19. CALCIUM [Concomitant]
     Dosage: UNK, 3/D
  20. VITAMIN D [Concomitant]
     Dosage: UNK, 3/D
  21. MULTI-VIT [Concomitant]
     Dosage: UNK, UNK
  22. MILK OF MAGNESIA TAB [Concomitant]

REACTIONS (13)
  - ABDOMINAL PAIN UPPER [None]
  - ALANINE AMINOTRANSFERASE INCREASED [None]
  - ANXIETY [None]
  - AORTIC ANEURYSM [None]
  - ASPARTATE AMINOTRANSFERASE INCREASED [None]
  - BLOOD ALKALINE PHOSPHATASE INCREASED [None]
  - BLOOD BILIRUBIN INCREASED [None]
  - CHOLECYSTITIS [None]
  - DEMENTIA ALZHEIMER'S TYPE [None]
  - DRY MOUTH [None]
  - GENERAL PHYSICAL HEALTH DETERIORATION [None]
  - HEPATOMEGALY [None]
  - LETHARGY [None]
